FAERS Safety Report 14530806 (Version 1)
Quarter: 2018Q1

REPORT INFORMATION
  Report Type: Spontaneous
  Country: US (occurrence: US)
  Receive Date: 20180214
  Receipt Date: 20180214
  Transmission Date: 20180509
  Serious: Yes (Other)
  Sender: FDA-Public Use
  Company Number: US-PFIZER INC-2018060318

PATIENT
  Age: 40 Year
  Sex: Male

DRUGS (1)
  1. LEVOTHYROXINE SODIUM. [Suspect]
     Active Substance: LEVOTHYROXINE SODIUM
     Indication: SEIZURE
     Dosage: UNK

REACTIONS (5)
  - Loss of consciousness [Unknown]
  - Fatigue [Unknown]
  - Headache [Unknown]
  - Product use in unapproved indication [Unknown]
  - Asthenia [Unknown]
